FAERS Safety Report 21499353 (Version 1)
Quarter: 2022Q4

REPORT INFORMATION
  Report Type: Spontaneous
  Country: US (occurrence: US)
  Receive Date: 20221024
  Receipt Date: 20221024
  Transmission Date: 20230113
  Serious: Yes (Other)
  Sender: FDA-Public Use
  Company Number: US-UCBSA-2022060743

PATIENT
  Sex: Female

DRUGS (1)
  1. KEPPRA [Suspect]
     Active Substance: LEVETIRACETAM
     Indication: Infantile spasms
     Dosage: UNK

REACTIONS (4)
  - Seizure [Unknown]
  - Change in seizure presentation [Unknown]
  - Screaming [Unknown]
  - Product use in unapproved indication [Unknown]
